FAERS Safety Report 4352594-2 (Version None)
Quarter: 2004Q2

REPORT INFORMATION
  Report Type: 
  Country: None (occurrence: None)
  Receive Date: 20040420
  Receipt Date: 20040303
  Transmission Date: 20050107
  Serious: No
  Sender: FDA-Public Use
  Company Number: 2004202184US

PATIENT
  Sex: Female

DRUGS (1)
  1. INSPRA [Suspect]
     Dosage: 25 MG, QD

REACTIONS (5)
  - DEAFNESS [None]
  - DYSPHAGIA [None]
  - MOTION SICKNESS [None]
  - NAUSEA [None]
  - VISION BLURRED [None]
